FAERS Safety Report 6643373-1 (Version None)
Quarter: 2010Q1

REPORT INFORMATION
  Report Type: 
  Country: None (occurrence: None)
  Receive Date: 20100319
  Receipt Date: 20100318
  Transmission Date: 20100710
  Serious: Yes (Life-Threatening, Hospitalization)
  Sender: FDA-Public Use
  Company Number: PHHO2010AR03160

PATIENT
  Sex: Female

DRUGS (16)
  1. ALISKIREN ALI+TAB+CVR [Suspect]
     Indication: CARDIOVASCULAR DISORDER
     Dosage: UNK
     Route: 048
     Dates: start: 20080625, end: 20100210
  2. ALISKIREN ALI+TAB+CVR [Suspect]
     Dosage: UNK
     Route: 048
     Dates: end: 20100315
  3. AMLODIPINE [Concomitant]
     Indication: HYPERTENSION
  4. HYDROCHLOROTHIAZIDE [Concomitant]
     Indication: HYPERTENSION
  5. ENALAPRIL MALEATE [Concomitant]
     Indication: HYPERTENSION
  6. LEVOTHYROXINE SODIUM [Concomitant]
     Indication: HYPOTHYROIDISM
  7. METOCLOPRAMIDE [Concomitant]
     Indication: DIABETES MELLITUS
  8. GLIBORNURIDE [Concomitant]
     Indication: DIABETES MELLITUS
  9. ROSIGLITAZONE [Concomitant]
     Indication: DIABETES MELLITUS
  10. PROPAFENONE HCL [Concomitant]
  11. ISOSORBIDE [Concomitant]
     Indication: VASODILATATION
  12. ASPIRIN [Concomitant]
     Indication: ANTIPLATELET THERAPY
  13. IBUPROFEN [Concomitant]
  14. METFORMIN HYDROCHLORIDE [Concomitant]
  15. VILDAGLIPTIN [Concomitant]
  16. GLIBENCLAMIDE [Concomitant]

REACTIONS (7)
  - ABDOMINAL PAIN [None]
  - BLOOD CREATININE INCREASED [None]
  - DEHYDRATION [None]
  - FAECALOMA [None]
  - PYREXIA [None]
  - RENAL FAILURE ACUTE [None]
  - VOMITING [None]
